FAERS Safety Report 23874023 (Version 1)
Quarter: 2024Q2

REPORT INFORMATION
  Report Type: Spontaneous
  Country: US (occurrence: None)
  Receive Date: 20240517
  Receipt Date: 20240517
  Transmission Date: 20240715
  Serious: Yes (Hospitalization)
  Sender: FDA-Public Use
  Company Number: None

PATIENT
  Age: 52 Year
  Sex: Female

DRUGS (1)
  1. DUPIXENT [Suspect]
     Active Substance: DUPILUMAB
     Indication: Asthma
     Dosage: EVERY OTHER WEEK SUBCUTANEOUS?
     Route: 058

REACTIONS (7)
  - Dry mouth [None]
  - Constipation [None]
  - Sepsis [None]
  - Stent removal [None]
  - Nephrolithiasis [None]
  - Urinary tract infection [None]
  - Asthma [None]

NARRATIVE: CASE EVENT DATE: 20240418
